FAERS Safety Report 6078022-7 (Version None)
Quarter: 2009Q1

REPORT INFORMATION
  Report Type: 
  Country: None (occurrence: None)
  Receive Date: 20090213
  Receipt Date: 20090204
  Transmission Date: 20090719
  Serious: Yes (Other)
  Sender: FDA-Public Use
  Company Number: BR-PFIZER INC-2008058354

PATIENT

DRUGS (2)
  1. CHAMPIX [Suspect]
     Dosage: 0.5 MG, 2X/DAY
     Route: 048
     Dates: start: 20080622, end: 20080630
  2. NICORETTE [Concomitant]

REACTIONS (10)
  - ANGER [None]
  - ANXIETY [None]
  - DEAFNESS NEUROSENSORY [None]
  - INSOMNIA [None]
  - MARITAL PROBLEM [None]
  - MENTAL DISORDER [None]
  - OTOTOXICITY [None]
  - STRESS [None]
  - SUICIDAL IDEATION [None]
  - TINNITUS [None]
